FAERS Safety Report 16922220 (Version 1)
Quarter: 2019Q4

REPORT INFORMATION
  Report Type: Spontaneous
  Country: US (occurrence: US)
  Receive Date: 20191015
  Receipt Date: 20191015
  Transmission Date: 20200122
  Serious: No
  Sender: FDA-Public Use
  Company Number: US-JNJFOC-20191011208

PATIENT
  Age: 34 Year
  Sex: Male
  Weight: 90.8 kg

DRUGS (1)
  1. ROGAINE [Suspect]
     Active Substance: MINOXIDIL
     Indication: ALOPECIA
     Dosage: AFTER THE DROP LINE 1.1 ML TWICE
     Route: 061
     Dates: start: 20190923

REACTIONS (2)
  - Application site dryness [Recovered/Resolved]
  - Overdose [Unknown]

NARRATIVE: CASE EVENT DATE: 20190923
